FAERS Safety Report 25985732 (Version 2)
Quarter: 2025Q4

REPORT INFORMATION
  Report Type: Spontaneous
  Country: US (occurrence: US)
  Receive Date: 20251102
  Receipt Date: 20251204
  Transmission Date: 20260118
  Serious: No
  Sender: DIFGEN PHARMACEUTICALS LLC
  Company Number: US-Difgen-012215

PATIENT

DRUGS (1)
  1. NICOTINE [Suspect]
     Active Substance: NICOTINE
     Indication: Product used for unknown indication
     Route: 062

REACTIONS (5)
  - Keratosis pilaris [Recovered/Resolved]
  - Product physical issue [Unknown]
  - Counterfeit product administered [Unknown]
  - Application site erythema [Recovered/Resolved]
  - Application site irritation [Recovered/Resolved]
